FAERS Safety Report 8214449-2 (Version None)
Quarter: 2012Q1

REPORT INFORMATION
  Report Type: 
  Country: None (occurrence: None)
  Receive Date: 20120316
  Receipt Date: 20120308
  Transmission Date: 20120608
  Serious: Yes (Hospitalization, Other)
  Sender: FDA-Public Use
  Company Number: US-BAYER-2011-096120

PATIENT
  Age: 33 Year
  Sex: Female
  Weight: 124.3 kg

DRUGS (4)
  1. LEVOTHYROXINE SODIUM [Concomitant]
     Dosage: 150 MCG/24HR, UNK
  2. YASMIN [Suspect]
     Dosage: UNK
     Route: 048
     Dates: start: 20091020, end: 20100117
  3. DROSPIRENONE AND ETHINYL ESTRADIOL [Suspect]
     Dosage: UNK
     Dates: start: 20091020, end: 20100117
  4. YAZ [Suspect]
     Dosage: UNK
     Route: 048
     Dates: start: 20091020, end: 20100117

REACTIONS (7)
  - INJURY [None]
  - PAIN [None]
  - DEEP VEIN THROMBOSIS [None]
  - EMOTIONAL DISTRESS [None]
  - RENAL VEIN THROMBOSIS [None]
  - GENERAL PHYSICAL HEALTH DETERIORATION [None]
  - ANXIETY [None]
